FAERS Safety Report 20604131 (Version 10)
Quarter: 2022Q4

REPORT INFORMATION
  Report Type: Spontaneous
  Country: US (occurrence: US)
  Receive Date: 20220316
  Receipt Date: 20221025
  Transmission Date: 20230112
  Serious: No
  Sender: FDA-Public Use
  Company Number: US-SA-SAC20220315000185

PATIENT
  Age: 17 Year
  Sex: Male

DRUGS (33)
  1. DUPIXENT [Suspect]
     Active Substance: DUPILUMAB
     Indication: Asthma
     Dosage: 600 MG, 1X
     Dates: start: 20220315, end: 20220315
  2. DUPIXENT [Suspect]
     Active Substance: DUPILUMAB
     Indication: Illness
     Dosage: 300 MG, QOW
     Route: 058
  3. LORATADINE [Concomitant]
     Active Substance: LORATADINE
     Dosage: UNK
  4. ALBUTEROL SULFATE [Concomitant]
     Active Substance: ALBUTEROL SULFATE
     Dosage: UNK
     Route: 055
     Dates: end: 20220426
  5. ZYRTEC [Concomitant]
     Active Substance: CETIRIZINE HYDROCHLORIDE
     Dosage: UNK, PRN
  6. FLOVENT [Concomitant]
     Active Substance: FLUTICASONE PROPIONATE
     Dosage: UNK
  7. SINGULAIR [Concomitant]
     Active Substance: MONTELUKAST SODIUM
     Dosage: 1 DF, QD (BEDTIME)
     Route: 048
     Dates: start: 20220201, end: 20220607
  8. SINGULAIR [Concomitant]
     Active Substance: MONTELUKAST SODIUM
     Dosage: 1 DF, QD (BEDTIME)
     Route: 048
     Dates: start: 20220607
  9. SODIUM CHLORIDE [Concomitant]
     Active Substance: SODIUM CHLORIDE
     Dosage: UNK UNK, Q12H (INHALE INTO LUNGS EVERY 12 HOURS)
     Route: 055
     Dates: start: 20220324
  10. SODIUM CHLORIDE [Concomitant]
     Active Substance: SODIUM CHLORIDE
     Dosage: UNK, BID (INHALE INTO LUNGS TWO TIMES A DAY MIX WITH TPA AND NEBULIZE TWICE DAILY)
     Route: 055
     Dates: start: 20220426
  11. PULMOZYME [Concomitant]
     Active Substance: DORNASE ALFA
     Dosage: 2.5 ML, QD (INHALE (2.5 MG) INTO LUNGS ONCE A DAY)
     Dates: start: 20220315, end: 20220315
  12. PULMOZYME [Concomitant]
     Active Substance: DORNASE ALFA
     Dosage: 2.5 ML, QD (INHALE (2.5 MG) INTO LUNGS ONCE A DAY)
     Route: 055
     Dates: start: 20220607
  13. ALBUTEROL [Concomitant]
     Active Substance: ALBUTEROL
     Indication: Dyspnoea
     Dosage: 4 PUFFS VIA INHALER,1 VIAL VIA NEBULIZER
  14. ALBUTEROL [Concomitant]
     Active Substance: ALBUTEROL
     Indication: Wheezing
     Dosage: 3 ML, Q4H (2.5 MG BY NEBULIZATION EVERY 4 HOURS AS NEEDED)
     Dates: start: 20220201
  15. DULERA [Concomitant]
     Active Substance: FORMOTEROL FUMARATE DIHYDRATE\MOMETASONE FUROATE
     Dosage: UNK, BID; 200-5 MCG/ACTUATION INHALER 2 PUFFS TWICE DAILY
     Dates: start: 20220201, end: 20220607
  16. DULERA [Concomitant]
     Active Substance: FORMOTEROL FUMARATE DIHYDRATE\MOMETASONE FUROATE
     Dosage: UNK, BID (INHALE 2 PUFFS INTO LUNGS TWO TIMES A DAY)
     Route: 055
     Dates: start: 20220607
  17. ALTEPLASE [Concomitant]
     Active Substance: ALTEPLASE
     Indication: Fibrinous bronchitis
     Dosage: UNK, BID
     Route: 055
  18. ALTEPLASE [Concomitant]
     Active Substance: ALTEPLASE
     Dosage: 4 MG, TID (NEBULIZATION FOR 42 DAYS)
     Route: 055
     Dates: start: 20220426
  19. AZITHROMYCIN [Concomitant]
     Active Substance: AZITHROMYCIN
     Dosage: UNK, TIW; MONDAY, WEDNESDAY, AND FRIDAYS
     Dates: start: 20220204, end: 20220607
  20. AZITHROMYCIN [Concomitant]
     Active Substance: AZITHROMYCIN
     Dosage: UNK, TIW MONDAY, WEDNESDAY, AND FRIDAYS
     Route: 048
     Dates: start: 20220608
  21. MOMETASONE FUROATE [Concomitant]
     Active Substance: MOMETASONE FUROATE
     Dosage: UNK, QD
  22. AMOXICILLIN\CLAVULANATE POTASSIUM [Concomitant]
     Active Substance: AMOXICILLIN\CLAVULANATE POTASSIUM
     Dosage: 875 MG, BID (TWO TIMES A DAY FOR 11 DOSES START ON EVENING. FOR TOTAL 7 DAYS/14 DOSES)
     Route: 048
     Dates: start: 20220315, end: 20220321
  23. CETIRIZINE [Concomitant]
     Active Substance: CETIRIZINE HYDROCHLORIDE
     Dosage: 10 MG
     Route: 048
  24. FLONASE [Concomitant]
     Active Substance: FLUTICASONE PROPIONATE
     Dosage: 1 DF, QD (1 SPRAY INTO THE NOSE ONCE A DAY)
     Dates: start: 20220201, end: 20220607
  25. FLONASE [Concomitant]
     Active Substance: FLUTICASONE PROPIONATE
     Dosage: 1 DF, QD (1 SPRAY INTO THE NOSE ONCE A DAY)
     Dates: start: 20220607
  26. DELTASONE [Concomitant]
     Active Substance: PREDNISONE
     Dosage: 3 DF, TID (3 TABLETS (30 MG) BY MOUTH ONCE A DAY FOR 2 DOSES)
     Route: 048
     Dates: start: 20220315, end: 20220317
  27. DELTASONE [Concomitant]
     Active Substance: PREDNISONE
     Dosage: 1 DF, QD (1 TABLET 10 MG BY MOUTH ONCE A DAY FOR 4 DOSES)
     Route: 048
     Dates: start: 20220321, end: 20220325
  28. DELTASONE [Concomitant]
     Active Substance: PREDNISONE
     Dosage: 1 DF BY MOUTH EVERY 48 HOURS FOR 2 DOSES
     Route: 048
     Dates: start: 20220326, end: 20220329
  29. DELTASONE [Concomitant]
     Active Substance: PREDNISONE
     Dosage: 1 DF, QD (1 TABLET (20 MG) BY MOUTH ONCE A DAY FOR 4 DOSES)
     Route: 048
     Dates: start: 20220317, end: 20220321
  30. ALBUTEROL SULFATE [Concomitant]
     Active Substance: ALBUTEROL SULFATE
     Dosage: UNK UNK, QID (INHALE 4 PUFFS INTO LUNGS 4 TIMES A DAY)
     Route: 055
     Dates: start: 20220315, end: 20220607
  31. SODIUM CHLORIDE [Concomitant]
     Active Substance: SODIUM CHLORIDE
     Dosage: UNK (APPLY 2 SPRAYS INTO THE NOSE AS NEEDED) (DRYNESS)
     Dates: start: 20220315
  32. SODIUM CHLORIDE [Concomitant]
     Active Substance: SODIUM CHLORIDE
     Dosage: 4 ML, BID (INHALE 4 ML INTO LUNGS 2 TIMES A DAY)
     Route: 055
     Dates: start: 20220201, end: 20220607
  33. SODIUM CHLORIDE [Concomitant]
     Active Substance: SODIUM CHLORIDE
     Dosage: 4 ML, BID (INHALE 4 ML INTO LUNGS 2 TIMES A DAY)
     Route: 055
     Dates: start: 20220607

REACTIONS (1)
  - Illness [Unknown]
